FAERS Safety Report 4439868-1 (Version None)
Quarter: 2004Q3

REPORT INFORMATION
  Report Type: 
  Country: None (occurrence: None)
  Receive Date: 20040831
  Receipt Date: 20040817
  Transmission Date: 20050211
  Serious: Yes (Hospitalization)
  Sender: FDA-Public Use
  Company Number: 2004-03651

PATIENT
  Age: 19 Year
  Sex: Male

DRUGS (5)
  1. ACETAMINOPHEN/CODEINE PHOSPHATE (WATSON LABORATORIES) (CODEINE PHOSPHA [Suspect]
     Indication: COUGH
     Dosage: 10 MG, TID, ORAL
     Route: 048
     Dates: start: 20020301
  2. ACETAMINOPHEN/CODEINE PHOSPHATE (WATSON LABORATORIES) (CODEINE PHOSPHA [Suspect]
     Indication: PHARYNGOLARYNGEAL PAIN
     Dosage: 10 MG, TID, ORAL
     Route: 048
     Dates: start: 20020301
  3. ACETAMINOPHEN [Concomitant]
  4. LYSOZYME (LYSOZYME) [Concomitant]
  5. CHLORPHENIRAMINE MALEATE [Concomitant]

REACTIONS (1)
  - DRUG HYPERSENSITIVITY [None]
